FAERS Safety Report 18103229 (Version 1)
Quarter: 2020Q3

REPORT INFORMATION
  Report Type: Spontaneous
  Country: US (occurrence: US)
  Receive Date: 20200731
  Receipt Date: 20200731
  Transmission Date: 20201103
  Serious: Yes (Other)
  Sender: FDA-Public Use
  Company Number: None

PATIENT
  Age: 81 Year
  Sex: Female
  Weight: 66.15 kg

DRUGS (11)
  1. ZESTRIL [Concomitant]
     Active Substance: LISINOPRIL
  2. FAMOTIDINE. [Concomitant]
     Active Substance: FAMOTIDINE
  3. HYDROCHLOROTHIAZIDE. [Concomitant]
     Active Substance: HYDROCHLOROTHIAZIDE
  4. METOPROLOL. [Concomitant]
     Active Substance: METOPROLOL
  5. IBRANCE [Suspect]
     Active Substance: PALBOCICLIB
     Indication: BREAST CANCER
     Route: 048
     Dates: start: 20200312
  6. DILANTIN [Concomitant]
     Active Substance: PHENYTOIN
  7. FLUTICASONE. [Concomitant]
     Active Substance: FLUTICASONE
  8. ONDANSETRON [Concomitant]
     Active Substance: ONDANSETRON
  9. LETROZOLE. [Concomitant]
     Active Substance: LETROZOLE
  10. GABAPENTIN. [Concomitant]
     Active Substance: GABAPENTIN
  11. KEPPRA [Concomitant]
     Active Substance: LEVETIRACETAM

REACTIONS (4)
  - Flatulence [None]
  - Abdominal discomfort [None]
  - Nausea [None]
  - Diarrhoea [None]

NARRATIVE: CASE EVENT DATE: 20200731
